FAERS Safety Report 8120243-3 (Version None)
Quarter: 2012Q1

REPORT INFORMATION
  Report Type: 
  Country: None (occurrence: None)
  Receive Date: 20120207
  Receipt Date: 20120128
  Transmission Date: 20120608
  Serious: Yes (Hospitalization, Other)
  Sender: FDA-Public Use
  Company Number: PHHY2012BR008143

PATIENT
  Sex: Female

DRUGS (2)
  1. DIOVAN HCT [Suspect]
     Dosage: 320/25 MG, UNK
  2. EXFORGE [Suspect]
     Dosage: 320 MG, UNK

REACTIONS (6)
  - ANXIETY [None]
  - PAIN [None]
  - SKIN ULCER [None]
  - HYPERTENSION [None]
  - PANIC DISORDER [None]
  - OBESITY [None]
